FAERS Safety Report 18330471 (Version 1)
Quarter: 2020Q3

REPORT INFORMATION
  Report Type: Spontaneous
  Country: RU (occurrence: RU)
  Receive Date: 20200930
  Receipt Date: 20200930
  Transmission Date: 20201103
  Serious: Yes (Other)
  Sender: FDA-Public Use
  Company Number: NVSC2020RU259075

PATIENT
  Age: 4 Year
  Sex: Female
  Weight: 20 kg

DRUGS (1)
  1. METHOTREXAT (EBEWE) (METHOTREXATE) [Suspect]
     Active Substance: METHOTREXATE
     Indication: JUVENILE IDIOPATHIC ARTHRITIS
     Dosage: 10 MG
     Route: 058
     Dates: start: 20200821

REACTIONS (3)
  - Anxiety [Unknown]
  - Aphthous ulcer [Unknown]
  - Pruritus [Unknown]
